FAERS Safety Report 9206611 (Version 2)
Quarter: 2013Q2

REPORT INFORMATION
  Report Type: Spontaneous
  Country: GR (occurrence: GR)
  Receive Date: 20130403
  Receipt Date: 20130429
  Transmission Date: 20140414
  Serious: Yes (Hospitalization)
  Sender: FDA-Public Use
  Company Number: PHHY2013GR032065

PATIENT
  Age: 53 Year
  Sex: Male

DRUGS (1)
  1. TASIGNA [Suspect]
     Dosage: 150 MG
     Route: 048

REACTIONS (4)
  - Multiple sclerosis [Unknown]
  - Radiculitis [Recovered/Resolved]
  - CSF protein increased [Recovered/Resolved]
  - Viral infection [Recovered/Resolved]
